FAERS Safety Report 9214051 (Version 2)
Quarter: 2013Q2

REPORT INFORMATION
  Report Type: Spontaneous
  Country: US (occurrence: US)
  Receive Date: 20130405
  Receipt Date: 20130424
  Transmission Date: 20140414
  Serious: No
  Sender: FDA-Public Use
  Company Number: US-PFIZER INC-2013108085

PATIENT
  Age: 80 Year
  Sex: Female

DRUGS (1)
  1. NEURONTIN [Suspect]
     Dosage: 1200 MIL.

REACTIONS (2)
  - Drug ineffective [Unknown]
  - Somnolence [Unknown]
